FAERS Safety Report 5674922-8 (Version None)
Quarter: 2008Q2

REPORT INFORMATION
  Report Type: 
  Country: None (occurrence: None)
  Receive Date: 20080303
  Receipt Date: 20070430
  Transmission Date: 20081010
  Serious: Yes (Hospitalization)
  Sender: FDA-Public Use
  Company Number: RB-6134-2007

PATIENT
  Age: 49 Year
  Sex: Female
  Weight: 54.4316 kg

DRUGS (3)
  1. SUBOXONE [Suspect]
     Indication: DRUG DEPENDENCE
     Dosage: TOOK 8 MG EVERY 12 HOURS FOR A TOTAL DOSE OF 24 MG. STOPPED DUE TO A AE'S SUBLINGUAL
     Route: 060
     Dates: start: 20070428, end: 20070429
  2. SEROQUEL [Concomitant]
  3. LAMOTRIGINE [Concomitant]

REACTIONS (2)
  - ABDOMINAL DISTENSION [None]
  - ABDOMINAL PAIN UPPER [None]
